FAERS Safety Report 5575878-9 (Version None)
Quarter: 2007Q4

REPORT INFORMATION
  Report Type: 
  Country: None (occurrence: None)
  Receive Date: 20071130
  Receipt Date: 20070807
  Transmission Date: 20080405
  Serious: No
  Sender: FDA-Public Use
  Company Number: US200707007115

PATIENT
  Age: 81 Year
  Sex: Male
  Weight: 96.6 kg

DRUGS (7)
  1. BYETTA [Suspect]
     Indication: TYPE 2 DIABETES MELLITUS
     Dosage: 5 UG, 2/D, SUBCUTANEOUS
     Route: 058
     Dates: start: 20070612, end: 20070726
  2. METFORMIN HCL [Concomitant]
  3. CARDIZEM [Concomitant]
  4. ALTACE [Concomitant]
  5. ASPIRIN [Concomitant]
  6. ZOCOR [Concomitant]
  7. DYAZIDE [Concomitant]

REACTIONS (2)
  - DECREASED APPETITE [None]
  - VENTRICULAR EXTRASYSTOLES [None]
